FAERS Safety Report 10070208 (Version 2)
Quarter: 2016Q1

REPORT INFORMATION
  Report Type: Spontaneous
  Country: SE (occurrence: SE)
  Receive Date: 20140410
  Receipt Date: 20160323
  Transmission Date: 20160525
  Serious: Yes (Hospitalization)
  Sender: FDA-Public Use
  Company Number: SE-ASTRAZENECA-2014SE24251

PATIENT
  Age: 55 Year
  Sex: Female

DRUGS (11)
  1. MIRTAZAPINE. [Suspect]
     Active Substance: MIRTAZAPINE
     Route: 065
     Dates: start: 20130212, end: 20130212
  2. PROPAVAN [Suspect]
     Active Substance: PROPIOMAZINE
     Route: 065
     Dates: start: 20130212, end: 20130212
  3. SEROQUEL [Suspect]
     Active Substance: QUETIAPINE FUMARATE
     Dosage: 15 DOSAGE FORM
     Route: 048
     Dates: start: 20130212
  4. STESOLID [Suspect]
     Active Substance: DIAZEPAM
     Dosage: 12 DOSAGE FORM
     Route: 065
     Dates: start: 20130212, end: 20130212
  5. MIRTAZAPINE. [Suspect]
     Active Substance: MIRTAZAPINE
     Dosage: 5-6 DOSAGE FORM
     Route: 065
     Dates: start: 20130212, end: 20130212
  6. LEVAXIN [Concomitant]
     Active Substance: LEVOTHYROXINE SODIUM
  7. SEROQUEL [Suspect]
     Active Substance: QUETIAPINE FUMARATE
     Route: 048
     Dates: start: 20130212, end: 20130212
  8. STESOLID [Suspect]
     Active Substance: DIAZEPAM
     Route: 065
     Dates: start: 20130212, end: 20130212
  9. VENLAFAXINE [Suspect]
     Active Substance: VENLAFAXINE HYDROCHLORIDE
     Route: 065
     Dates: start: 20130212, end: 20130212
  10. VENLAFAXINE [Suspect]
     Active Substance: VENLAFAXINE HYDROCHLORIDE
     Dosage: 10 DOSAGE FORM
     Route: 065
     Dates: start: 20130212, end: 20130212
  11. PROPAVAN [Suspect]
     Active Substance: PROPIOMAZINE
     Dosage: 4-5 DOSAGE FORM
     Route: 065
     Dates: start: 20130212, end: 20130212

REACTIONS (3)
  - Affect lability [Unknown]
  - Toxicity to various agents [Recovered/Resolved]
  - Suicidal ideation [Recovered/Resolved]

NARRATIVE: CASE EVENT DATE: 20130212
